FAERS Safety Report 6120539-0 (Version None)
Quarter: 2009Q1

REPORT INFORMATION
  Report Type: 
  Country: None (occurrence: None)
  Receive Date: 20090317
  Receipt Date: 20090304
  Transmission Date: 20090719
  Serious: Yes (Hospitalization)
  Sender: FDA-Public Use
  Company Number: PHHY2009IE08208

PATIENT
  Sex: Female

DRUGS (2)
  1. CLOZARIL [Suspect]
     Indication: SCHIZOPHRENIA
     Dosage: UNK
     Dates: start: 20081015
  2. CARBIMAZOLE [Suspect]
     Indication: THYROID FUNCTION TEST ABNORMAL
     Dosage: UNK
     Dates: start: 20090226

REACTIONS (3)
  - MALAISE [None]
  - NEUTROPHIL COUNT DECREASED [None]
  - THYROID FUNCTION TEST ABNORMAL [None]
